FAERS Safety Report 13003306 (Version 2)
Quarter: 2018Q1

REPORT INFORMATION
  Report Type: Spontaneous
  Country: GB (occurrence: GB)
  Receive Date: 20161206
  Receipt Date: 20180130
  Transmission Date: 20180508
  Serious: Yes (Hospitalization, Other)
  Sender: FDA-Public Use
  Company Number: GB-TEVA-716293ACC

PATIENT
  Age: 59 Year
  Sex: Male

DRUGS (14)
  1. 5-FLUOROURACIL [Suspect]
     Active Substance: FLUOROURACIL
     Indication: GASTROOESOPHAGEAL CANCER
     Dosage: MOST RECENT DOSE PRIOR TO EVENT ONSET ADMINISTERED ON: 23-JUL-2013
     Route: 041
     Dates: start: 20130627
  2. CITALOPRAM [Concomitant]
     Active Substance: CITALOPRAM HYDROBROMIDE
     Dosage: DOSAGE WAS REPORTED AS: DAILY DOSE: 10 MG
     Route: 048
     Dates: start: 20120720
  3. LEVOMEPROMAZINE [Concomitant]
     Active Substance: LEVOMEPROMAZINE
     Indication: NEUTROPENIA
  4. PARACETAMOL [Concomitant]
     Active Substance: ACETAMINOPHEN
     Indication: PAIN
     Dosage: DOSAGE WAS REPORTED AS 1 G
     Route: 048
     Dates: start: 20130517, end: 20130715
  5. CHLORHEXIDINE [Concomitant]
     Active Substance: CHLORHEXIDINE
  6. DEXAMETHASONE. [Concomitant]
     Active Substance: DEXAMETHASONE
     Indication: PROPHYLAXIS OF NAUSEA AND VOMITING
     Dosage: DOSAGE WAS REPORTED AS 8 MG
     Route: 042
     Dates: start: 20130627
  7. ONDANSETRON [Concomitant]
     Active Substance: ONDANSETRON
     Indication: PROPHYLAXIS OF NAUSEA AND VOMITING
     Dosage: DOSAGE WAS REPORTED AS 8 MG
     Route: 042
     Dates: start: 20130627
  8. FOLINIC ACID [Suspect]
     Active Substance: LEUCOVORIN
     Indication: GASTROOESOPHAGEAL CANCER
     Dosage: MOST RECENT DOSE PRIOR TO EVENT ONSET ADMINISTERED ON: 23-JUL-2013
     Route: 042
     Dates: start: 20130627
  9. DOMPERIDONE [Concomitant]
     Active Substance: DOMPERIDONE
     Indication: NAUSEA
     Dosage: DOSAGE WAS REPORTED AS: DAILY DOSE: 10 MG
     Route: 048
     Dates: start: 20130517
  10. OXALIPLATIN. [Suspect]
     Active Substance: OXALIPLATIN
     Indication: GASTROOESOPHAGEAL CANCER
     Dosage: MOST RECENT DOSE PRIOR TO EVENT ONSET ADMINISTERED ON: 23-JUL-2013
     Route: 042
     Dates: start: 20130627
  11. TINZAPARIN [Concomitant]
     Active Substance: TINZAPARIN
     Indication: DEEP VEIN THROMBOSIS
     Dosage: DOSAGE WAS REPORTED AS 14000 IU
     Route: 058
     Dates: start: 20130809
  12. 5-FLUOROURACIL [Suspect]
     Active Substance: FLUOROURACIL
     Indication: GASTROOESOPHAGEAL CANCER
     Dosage: MOST RECENT DOSE PRIOR TO EVENT ONSET ADMINISTERED ON: 23-JUL-2013
     Route: 040
     Dates: start: 20130627
  13. IBUPROFEN. [Concomitant]
     Active Substance: IBUPROFEN
     Indication: PAIN
     Dosage: DOSAGE WAS REPORTED AS: DAILY DOSE: 400 MG
     Route: 048
     Dates: start: 20130709
  14. SUCRALFATE. [Concomitant]
     Active Substance: SUCRALFATE
     Dosage: DOSAGE WAS REPORTED AS: DAILY DOSE: 1 G
     Route: 048
     Dates: start: 20120817

REACTIONS (2)
  - Neutropenia [Recovered/Resolved]
  - Deep vein thrombosis [Unknown]

NARRATIVE: CASE EVENT DATE: 20130806
